FAERS Safety Report 8396761-X (Version None)
Quarter: 2012Q2

REPORT INFORMATION
  Report Type: 
  Country: None (occurrence: None)
  Receive Date: 20120530
  Receipt Date: 20120527
  Transmission Date: 20120825
  Serious: No
  Sender: FDA-Public Use
  Company Number: US-TEVA-340425USA

PATIENT
  Sex: Female

DRUGS (3)
  1. THYROID MEDICATION [Concomitant]
     Indication: HYPOTHYROIDISM
  2. PROGESTERONE [Concomitant]
     Indication: PROGESTERONE DECREASED
  3. PLAN B ONE-STEP [Suspect]
     Indication: POST COITAL CONTRACEPTION
     Dosage: 1.5 MILLIGRAM;
     Route: 048
     Dates: start: 20120419, end: 20120419

REACTIONS (2)
  - NAUSEA [None]
  - MENSTRUATION IRREGULAR [None]
